FAERS Safety Report 17569194 (Version 2)
Quarter: 2021Q3

REPORT INFORMATION
  Report Type: Report from Study
  Country: US (occurrence: US)
  Receive Date: 20200322
  Receipt Date: 20210810
  Transmission Date: 20211014
  Serious: Yes (Hospitalization)
  Sender: FDA-Public Use
  Company Number: NVSC2019US032873

PATIENT
  Age: 69 Year
  Sex: Male
  Weight: 93 kg

DRUGS (3)
  1. LOSARTAN. [Suspect]
     Active Substance: LOSARTAN
     Indication: HYPERTENSION
     Dosage: 100 MG, QD
     Route: 048
     Dates: start: 20180901, end: 20190901
  2. LOSARTAN. [Suspect]
     Active Substance: LOSARTAN
     Dosage: 50 MG, QD
     Route: 048
     Dates: start: 20190902
  3. AMILOMOTIDE. [Suspect]
     Active Substance: AMILOMOTIDE
     Indication: DEMENTIA ALZHEIMER^S TYPE
     Dosage: 450 UG
     Route: 030
     Dates: end: 20190716

REACTIONS (1)
  - Hypotension [Recovered/Resolved]

NARRATIVE: CASE EVENT DATE: 20190901
